FAERS Safety Report 5782457-7 (Version None)
Quarter: 2008Q2

REPORT INFORMATION
  Report Type: 
  Country: None (occurrence: None)
  Receive Date: 20080623
  Receipt Date: 20080613
  Transmission Date: 20081010
  Serious: Yes (Hospitalization)
  Sender: FDA-Public Use
  Company Number: PHRM2008FR01374

PATIENT
  Sex: Male

DRUGS (1)
  1. GLIVEC [Suspect]
     Indication: GASTROINTESTINAL STROMAL TUMOUR
     Dosage: 400 MG DAILY
     Route: 048
     Dates: start: 20080401

REACTIONS (10)
  - ASCITES [None]
  - BLOOD ALBUMIN DECREASED [None]
  - DIARRHOEA [None]
  - DUODENITIS [None]
  - ENDOSCOPY ABNORMAL [None]
  - GENERALISED OEDEMA [None]
  - OEDEMA PERIPHERAL [None]
  - OESOPHAGITIS [None]
  - PARACENTESIS [None]
  - PLEURAL EFFUSION [None]
